FAERS Safety Report 4931969-4 (Version None)
Quarter: 2006Q1

REPORT INFORMATION
  Report Type: 
  Country: None (occurrence: None)
  Receive Date: 20060303
  Receipt Date: 20050621
  Transmission Date: 20060701
  Serious: Yes (Hospitalization)
  Sender: FDA-Public Use
  Company Number: GBWYE763021JUN05

PATIENT
  Sex: Female

DRUGS (8)
  1. ENBREL [Suspect]
     Indication: PSORIATIC ARTHROPATHY
     Route: 058
     Dates: start: 20030716, end: 20050503
  2. ATENOLOL [Concomitant]
  3. BENDROFLUAZIDE [Concomitant]
  4. OMEPRAZOLE [Concomitant]
  5. MELOXICAM [Concomitant]
  6. SIMVASTATIN [Concomitant]
  7. RISEDRONATE [Concomitant]
  8. CALCICHEW [Concomitant]

REACTIONS (4)
  - ABSCESS NECK [None]
  - CELLULITIS [None]
  - PAIN [None]
  - STREPTOCOCCAL ABSCESS [None]
